FAERS Safety Report 21958216 (Version 2)
Quarter: 2023Q1

REPORT INFORMATION
  Report Type: Spontaneous
  Country: CN (occurrence: CN)
  Receive Date: 20230206
  Receipt Date: 20230209
  Transmission Date: 20230418
  Serious: Yes (Hospitalization, Other)
  Sender: FDA-Public Use
  Company Number: CN-MLMSERVICE-20230124-4060774-1

PATIENT
  Age: 46 Year
  Sex: Male

DRUGS (2)
  1. METHOTREXATE SODIUM [Suspect]
     Active Substance: METHOTREXATE SODIUM
     Indication: Psoriasis
     Dosage: 30 MG, WEEKLY (15-30?MG WEEKLY. THE USE OF THIS MEDICATION LASTED FOR 3?YEARS)
     Route: 048
  2. METHOTREXATE SODIUM [Suspect]
     Active Substance: METHOTREXATE SODIUM
     Dosage: 15 MG, WEEKLY (15-30?MG WEEKLY. THE USE OF THIS MEDICATION LASTED FOR 3?YEARS)
     Route: 048

REACTIONS (3)
  - Ascites [Recovered/Resolved]
  - Self-medication [Recovered/Resolved]
  - Hepatic cirrhosis [Recovered/Resolved]
